FAERS Safety Report 14936284 (Version 3)
Quarter: 2018Q4

REPORT INFORMATION
  Report Type: Spontaneous
  Country: US (occurrence: US)
  Receive Date: 20180524
  Receipt Date: 20181212
  Transmission Date: 20190204
  Serious: Yes (Hospitalization, Other)
  Sender: FDA-Public Use
  Company Number: US-ASTRAZENECA-2018SE67739

PATIENT
  Age: 134 Month
  Weight: 42 kg

DRUGS (4)
  1. FASENRA [Suspect]
     Active Substance: BENRALIZUMAB
     Indication: EOSINOPHILIC OESOPHAGITIS
     Dosage: 30MG/ML EVERY EIGHT WEEKS
     Route: 058
     Dates: start: 201802
  2. BENADRYL [Concomitant]
     Active Substance: DIPHENHYDRAMINE HYDROCHLORIDE
     Route: 048
  3. FASENRA [Suspect]
     Active Substance: BENRALIZUMAB
     Indication: EOSINOPHILIC OESOPHAGITIS
     Dosage: 30MG/ML EVERY EIGHT WEEKS
     Route: 058
     Dates: start: 20180322, end: 20180614
  4. FASENRA [Suspect]
     Active Substance: BENRALIZUMAB
     Indication: EOSINOPHILIC OESOPHAGITIS
     Dosage: 30MG/ML EVERY EIGHT WEEKS
     Route: 058

REACTIONS (12)
  - Conversion disorder [Unknown]
  - Pain [Unknown]
  - Fatigue [Unknown]
  - Sensory loss [Unknown]
  - Product use in unapproved indication [Unknown]
  - Atonic seizures [Unknown]
  - Head discomfort [Unknown]
  - Altered state of consciousness [Unknown]
  - Metabolic disorder [Unknown]
  - Off label use [Unknown]
  - Unresponsive to stimuli [Unknown]
  - Asthenia [Unknown]

NARRATIVE: CASE EVENT DATE: 201802
